FAERS Safety Report 23889848 (Version 1)
Quarter: 2024Q2

REPORT INFORMATION
  Report Type: Spontaneous
  Country: US (occurrence: None)
  Receive Date: 20240523
  Receipt Date: 20240523
  Transmission Date: 20240716
  Serious: No
  Sender: FDA-Public Use
  Company Number: None

PATIENT
  Age: 46 Year
  Sex: Female

DRUGS (11)
  1. CAPECITABINE [Suspect]
     Active Substance: CAPECITABINE
     Indication: Metastases to liver
     Dosage: OTHER FREQUENCY : EVERY MORNING AND ;?
     Route: 048
     Dates: start: 20231107
  2. ADRENAL [Concomitant]
     Active Substance: EPINEPHRINE
  3. CALCIUM/D [Concomitant]
  4. CAPECITABINE [Concomitant]
     Active Substance: CAPECITABINE
  5. GABAPENTIN [Concomitant]
     Active Substance: GABAPENTIN
  6. LIDO/PRILOCN CRE [Concomitant]
  7. LISINOPRIL [Concomitant]
     Active Substance: LISINOPRIL
  8. MAGNESIUM [Concomitant]
     Active Substance: MAGNESIUM
  9. MINOCYCLINE HYDROCHLORIDE [Concomitant]
     Active Substance: MINOCYCLINE HYDROCHLORIDE
  10. VITAMINS [Concomitant]
     Active Substance: VITAMINS
  11. PAROXETINE [Concomitant]
     Active Substance: PAROXETINE

REACTIONS (2)
  - Hospitalisation [None]
  - Therapy interrupted [None]

NARRATIVE: CASE EVENT DATE: 20240504
